FAERS Safety Report 9676329 (Version 1)
Quarter: 2013Q4

REPORT INFORMATION
  Report Type: Spontaneous
  Country: JP (occurrence: JP)
  Receive Date: 20131107
  Receipt Date: 20131107
  Transmission Date: 20140711
  Serious: Yes (Other)
  Sender: FDA-Public Use
  Company Number: JP-BAXTER-2013BAX043240

PATIENT
  Age: 73 Year
  Sex: Male
  Weight: 71 kg

DRUGS (7)
  1. SUPRANE [Suspect]
     Indication: MAINTENANCE OF ANAESTHESIA
  2. PROPOFOL [Suspect]
     Indication: INDUCTION OF ANAESTHESIA
     Route: 042
  3. FENTANYL CITRATE [Suspect]
     Indication: INDUCTION OF ANAESTHESIA
     Route: 042
  4. FENTANYL CITRATE [Suspect]
     Indication: MAINTENANCE OF ANAESTHESIA
  5. ROCURONIUM BROMIDE [Suspect]
     Indication: INDUCTION OF ANAESTHESIA
     Route: 042
  6. REMIFENTANIL HYDROCHLORIDE [Suspect]
     Indication: MAINTENANCE OF ANAESTHESIA
     Route: 042
  7. REMIFENTANIL HYDROCHLORIDE [Suspect]
     Route: 042

REACTIONS (3)
  - Respiratory depression [Recovered/Resolved]
  - Subcutaneous emphysema [Recovered/Resolved]
  - Delayed recovery from anaesthesia [Recovered/Resolved]
